FAERS Safety Report 13465670 (Version 1)
Quarter: 2017Q2

REPORT INFORMATION
  Report Type: Spontaneous
  Country: US (occurrence: US)
  Receive Date: 20170420
  Receipt Date: 20170420
  Transmission Date: 20170830
  Serious: No
  Sender: FDA-Public Use
  Company Number: None

PATIENT
  Age: 69 Year
  Sex: Male

DRUGS (1)
  1. VANCOMYCIN [Suspect]
     Active Substance: VANCOMYCIN
     Indication: BURSITIS
     Route: 042
     Dates: start: 20170410, end: 20170410

REACTIONS (1)
  - Rash [None]

NARRATIVE: CASE EVENT DATE: 20170410
